FAERS Safety Report 10420870 (Version 1)
Quarter: 2014Q3

REPORT INFORMATION
  Report Type: Spontaneous
  Country: US (occurrence: None)
  Receive Date: 20140829
  Receipt Date: 20140829
  Transmission Date: 20150326
  Serious: Yes (Hospitalization)
  Sender: FDA-Public Use
  Company Number: None

PATIENT
  Age: 57 Year
  Sex: Male

DRUGS (3)
  1. PEGASYS [Suspect]
     Active Substance: PEGINTERFERON ALFA-2A
     Indication: HEPATITIS C
     Dosage: EVERY 7 DAYS
     Route: 058
     Dates: start: 20140714
  2. SOVALDI [Concomitant]
     Active Substance: SOFOSBUVIR
  3. RIBAVIRIN. [Concomitant]
     Active Substance: RIBAVIRIN

REACTIONS (6)
  - Nausea [None]
  - Headache [None]
  - Vomiting [None]
  - Chest pain [None]
  - Chest discomfort [None]
  - Arthralgia [None]

NARRATIVE: CASE EVENT DATE: 20140815
